FAERS Safety Report 8860348 (Version 1)
Quarter: 2012Q4

REPORT INFORMATION
  Report Type: 
  Country: US (occurrence: US)
  Receive Date: 20121025
  Receipt Date: 20121025
  Transmission Date: 20130627
  Serious: No
  Sender: FDA-Public Use
  Company Number: US-PFIZER INC-2012265846

PATIENT
  Age: 33 Year
  Sex: Female

DRUGS (2)
  1. SUTENT [Suspect]
     Indication: LUNG NEOPLASM MALIGNANT
     Dosage: 50 mg, UNK
     Dates: start: 20120912, end: 20121008
  2. HERCEPTIN [Concomitant]
     Dosage: UNK
     Dates: end: 20121009

REACTIONS (2)
  - Disease progression [Unknown]
  - Lung neoplasm malignant [Unknown]
